FAERS Safety Report 11878438 (Version 1)
Quarter: 2015Q4

REPORT INFORMATION
  Report Type: Report from Study
  Country: FR (occurrence: FR)
  Receive Date: 20151230
  Receipt Date: 20151230
  Transmission Date: 20160305
  Serious: Yes (Death)
  Sender: FDA-Public Use
  Company Number: PHHO2015FR021290

PATIENT

DRUGS (2)
  1. PLACEBO [Suspect]
     Active Substance: UNSPECIFIED INGREDIENT
     Indication: ANGIODYSPLASIA
     Route: 030
  2. SOM230 [Suspect]
     Active Substance: PASIREOTIDE
     Indication: ANGIODYSPLASIA
     Route: 065

REACTIONS (3)
  - Multi-organ failure [Fatal]
  - Retroperitoneal haematoma [Fatal]
  - Haemorrhagic anaemia [Fatal]

NARRATIVE: CASE EVENT DATE: 20150417
